FAERS Safety Report 5627140-3 (Version None)
Quarter: 2008Q1

REPORT INFORMATION
  Report Type: 
  Country: None (occurrence: None)
  Receive Date: 20080212
  Receipt Date: 20080212
  Transmission Date: 20080703
  Serious: No
  Sender: FDA-Public Use
  Company Number: None

PATIENT
  Age: 33 Year
  Sex: Female
  Weight: 72.5755 kg

DRUGS (1)
  1. CHANTIX [Suspect]
     Indication: SMOKING CESSATION THERAPY
     Dosage: .5MG TWICE PER DAY PO
     Route: 048
     Dates: start: 20071020, end: 20080208

REACTIONS (12)
  - ABDOMINAL DISTENSION [None]
  - ANGER [None]
  - ANHEDONIA [None]
  - EMOTIONAL DISORDER [None]
  - HOSTILITY [None]
  - IRRITABILITY [None]
  - NAUSEA [None]
  - NIGHT SWEATS [None]
  - NIGHTMARE [None]
  - PARTNER STRESS [None]
  - SLEEP TALKING [None]
  - THINKING ABNORMAL [None]
